FAERS Safety Report 12319570 (Version 1)
Quarter: 2016Q2

REPORT INFORMATION
  Report Type: Spontaneous
  Country: US (occurrence: US)
  Receive Date: 20160429
  Receipt Date: 20160429
  Transmission Date: 20160815
  Serious: Yes (Other)
  Sender: FDA-Public Use
  Company Number: US-ROCHE-1622111

PATIENT
  Sex: Male

DRUGS (13)
  1. BEVACIZUMAB [Suspect]
     Active Substance: BEVACIZUMAB
     Indication: GASTRIC CANCER STAGE IV
     Route: 065
     Dates: start: 201404
  2. OXALIPLATIN. [Suspect]
     Active Substance: OXALIPLATIN
     Indication: NEOPLASM MALIGNANT
     Route: 065
     Dates: start: 201406
  3. GEMCITABINE [Suspect]
     Active Substance: GEMCITABINE\GEMCITABINE HYDROCHLORIDE
     Indication: GASTRIC CANCER STAGE IV
     Route: 065
     Dates: start: 201404
  4. 5-FU [Suspect]
     Active Substance: FLUOROURACIL
     Route: 065
     Dates: start: 201408, end: 201410
  5. EPIRUBICIN [Suspect]
     Active Substance: EPIRUBICIN
     Indication: GASTRIC CANCER STAGE IV
     Route: 065
     Dates: start: 201404
  6. 5-FU [Suspect]
     Active Substance: FLUOROURACIL
     Indication: NEOPLASM MALIGNANT
     Route: 065
     Dates: start: 201406
  7. DOCETAXEL. [Suspect]
     Active Substance: DOCETAXEL
     Route: 065
     Dates: start: 201408, end: 201410
  8. LOVENOX [Concomitant]
     Active Substance: ENOXAPARIN SODIUM
     Route: 058
  9. TRAMADOL. [Concomitant]
     Active Substance: TRAMADOL
     Indication: PAIN
     Dosage: EVERY 6 HOURS AS NEEDED
     Route: 065
  10. ZOFRAN [Concomitant]
     Active Substance: ONDANSETRON HYDROCHLORIDE
     Indication: NAUSEA
     Dosage: AS NEEDED
     Route: 065
  11. CARBOPLATIN. [Suspect]
     Active Substance: CARBOPLATIN
     Indication: NEOPLASM MALIGNANT
     Route: 065
     Dates: start: 201408, end: 201410
  12. DOCETAXEL. [Suspect]
     Active Substance: DOCETAXEL
     Indication: NEOPLASM MALIGNANT
     Dosage: BIWEEKLY D-FOX
     Route: 065
     Dates: start: 201406
  13. NEXIUM [Concomitant]
     Active Substance: ESOMEPRAZOLE MAGNESIUM
     Dosage: DAILY
     Route: 065

REACTIONS (21)
  - Deep vein thrombosis [Unknown]
  - Stomatitis [Unknown]
  - Dyspnoea [Unknown]
  - Blood albumin decreased [Unknown]
  - Muscle hypertrophy [Unknown]
  - Infection [Unknown]
  - Nausea [Unknown]
  - Headache [Unknown]
  - Abdominal discomfort [Unknown]
  - Diarrhoea [Unknown]
  - Urine flow decreased [Unknown]
  - Metastatic neoplasm [Unknown]
  - Pain [Unknown]
  - Gastric disorder [Unknown]
  - Adenocarcinoma [Unknown]
  - Neuropathy peripheral [Unknown]
  - Induration [Unknown]
  - Tumour invasion [Unknown]
  - Asthenia [Unknown]
  - Dysuria [Not Recovered/Not Resolved]
  - Atelectasis [Unknown]

NARRATIVE: CASE EVENT DATE: 201407
